FAERS Safety Report 8966079 (Version 1)
Quarter: 2012Q4

REPORT INFORMATION
  Report Type: 
  Country: AT (occurrence: AT)
  Receive Date: 20121214
  Receipt Date: 20121214
  Transmission Date: 20130627
  Serious: Yes (Other)
  Sender: FDA-Public Use
  Company Number: AT-UCBSA-072793

PATIENT
  Age: 44 Year
  Sex: Female

DRUGS (3)
  1. VIMPAT [Suspect]
     Indication: EPILEPSY
     Route: 048
     Dates: start: 201210, end: 201211
  2. TEGRETOL [Concomitant]
     Indication: EPILEPSY
     Route: 048
  3. FRISIUM [Concomitant]
     Indication: ANXIETY
     Route: 048

REACTIONS (1)
  - Convulsion [Recovered/Resolved]
